FAERS Safety Report 5229874-1 (Version None)
Quarter: 2007Q1

REPORT INFORMATION
  Report Type: 
  Country: None (occurrence: None)
  Receive Date: 20070206
  Receipt Date: 20061116
  Transmission Date: 20070707
  Serious: No
  Sender: FDA-Public Use
  Company Number: US-GLAXOSMITHKLINE-A0627816A

PATIENT
  Sex: Female

DRUGS (2)
  1. PAROXETINE HCL [Suspect]
     Indication: ANXIETY
     Dosage: 20MG PER DAY
  2. LORAZEPAM [Concomitant]

REACTIONS (5)
  - ABNORMAL DREAMS [None]
  - DEPRESSION [None]
  - DYSPEPSIA [None]
  - OESOPHAGEAL PAIN [None]
  - TREMOR [None]
